FAERS Safety Report 6703468-0 (Version None)
Quarter: 2010Q2

REPORT INFORMATION
  Report Type: 
  Country: None (occurrence: None)
  Receive Date: 20100430
  Receipt Date: 20100420
  Transmission Date: 20101027
  Serious: Yes (Other)
  Sender: FDA-Public Use
  Company Number: US-WYE-H14734710

PATIENT
  Sex: Male
  Weight: 68.1 kg

DRUGS (7)
  1. PROTONIX [Suspect]
     Indication: GASTROOESOPHAGEAL REFLUX DISEASE
  2. PLAVIX [Concomitant]
     Dosage: UNKNOWN
  3. PROPECIA [Concomitant]
     Indication: ALOPECIA
     Dosage: UNKNOWN
  4. METOPROLOL [Concomitant]
     Dosage: UNKNOWN
  5. ECOTRIN [Concomitant]
     Dosage: UNKNOWN
  6. NIASPAN [Concomitant]
     Dosage: UNKNOWN
  7. VYTORIN [Concomitant]
     Dosage: UNKNOWN

REACTIONS (1)
  - NEPHROLITHIASIS [None]
